FAERS Safety Report 7707729-8 (Version None)
Quarter: 2011Q3

REPORT INFORMATION
  Report Type: 
  Country: None (occurrence: None)
  Receive Date: 20110824
  Receipt Date: 20110816
  Transmission Date: 20111222
  Serious: Yes (Hospitalization, Other)
  Sender: FDA-Public Use
  Company Number: JP-ABBOTT-11P-087-0703639-00

PATIENT
  Sex: Female
  Weight: 62 kg

DRUGS (12)
  1. TORSEMIDE [Concomitant]
     Indication: HYPERTENSION
     Dosage: 4MG DAILY
     Route: 048
  2. NATEGLINIDE [Concomitant]
     Indication: DIABETES MELLITUS
     Route: 048
     Dates: start: 20080919, end: 20110105
  3. METHOTREXATE [Concomitant]
     Indication: RHEUMATOID ARTHRITIS
     Route: 048
     Dates: start: 20080822
  4. PRAVASTATIN SODIUM [Concomitant]
     Indication: HYPERLIPIDAEMIA
     Dosage: 10MG DAILY
     Route: 048
  5. FOLIC ACID [Concomitant]
     Indication: FOLATE DEFICIENCY
     Route: 048
     Dates: start: 20080822
  6. CANDESARTAN CILEXETIL [Concomitant]
     Indication: HYPERTENSION
     Route: 048
     Dates: start: 20080919
  7. RANITIDINE HYDROCHLORIDE [Concomitant]
     Indication: GASTRITIS
     Dosage: 150MG DAILY
     Route: 048
  8. PIOGLITAZONE HYDROCHLORIDE [Concomitant]
     Indication: DIABETES MELLITUS
     Route: 048
     Dates: start: 20100822, end: 20110105
  9. ISONIAZID [Concomitant]
     Indication: TUBERCULOSIS
     Route: 048
     Dates: start: 20091121, end: 20110105
  10. HUMIRA [Suspect]
     Indication: RHEUMATOID ARTHRITIS
     Route: 058
     Dates: start: 20100122, end: 20100727
  11. HUMIRA [Suspect]
     Dates: start: 20101004, end: 20101206
  12. TOCILIZUMAB [Concomitant]
     Indication: RHEUMATOID ARTHRITIS

REACTIONS (9)
  - INFECTION [None]
  - DECREASED APPETITE [None]
  - HYPOXIA [None]
  - FALL [None]
  - PYREXIA [None]
  - HAEMORRHAGE SUBCUTANEOUS [None]
  - PANCYTOPENIA [None]
  - MALAISE [None]
  - OXYGEN SATURATION DECREASED [None]
